FAERS Safety Report 20348609 (Version 5)
Quarter: 2022Q2

REPORT INFORMATION
  Report Type: Spontaneous
  Country: CA (occurrence: CA)
  Receive Date: 20220119
  Receipt Date: 20220414
  Transmission Date: 20220721
  Serious: Yes (Hospitalization, Other)
  Sender: FDA-Public Use
  Company Number: CA-CELLTRION INC.-2021CA005380

PATIENT

DRUGS (11)
  1. INFLECTRA [Suspect]
     Active Substance: INFLIXIMAB-DYYB
     Indication: Crohn^s disease
     Dosage: 450 MG (5MG/KG), 0, 2 AND 6, THEN EVERY 8 WEEKS
     Route: 042
     Dates: start: 20210305, end: 20210803
  2. INFLECTRA [Suspect]
     Active Substance: INFLIXIMAB-DYYB
     Dosage: 450 MG 0, 2 AND 6, THEN EVERY 8 WEEKS
     Route: 042
     Dates: start: 20210319, end: 20210319
  3. INFLECTRA [Suspect]
     Active Substance: INFLIXIMAB-DYYB
     Dosage: 450 MG 0, 2 AND 6, THEN EVERY 8 WEEKS
     Route: 042
     Dates: start: 20210415
  4. INFLECTRA [Suspect]
     Active Substance: INFLIXIMAB-DYYB
     Dosage: 450 MG 0, 2 AND 6, THEN EVERY 8 WEEKS
     Route: 042
     Dates: start: 20210607
  5. INFLECTRA [Suspect]
     Active Substance: INFLIXIMAB-DYYB
     Dosage: 450 MG 0, 2 AND 6, THEN EVERY 8 WEEKS
     Route: 042
     Dates: start: 20210803
  6. INFLECTRA [Suspect]
     Active Substance: INFLIXIMAB-DYYB
     Dosage: 900 MG - 10 MG/KG, BOOSTER DOSE START
     Route: 042
     Dates: start: 20210818
  7. INFLECTRA [Suspect]
     Active Substance: INFLIXIMAB-DYYB
     Dosage: 900 MG, STAT DOSE THEN EVERY 8 WEEKS
     Route: 042
     Dates: start: 20210818, end: 20210818
  8. INFLECTRA [Suspect]
     Active Substance: INFLIXIMAB-DYYB
     Dosage: 1000 MG , EVERY 8 WEEKS
     Route: 042
     Dates: start: 20211014
  9. INFLECTRA [Suspect]
     Active Substance: INFLIXIMAB-DYYB
     Dosage: 1000 MG , EVERY 8 WEEKS
     Route: 042
     Dates: start: 20211208
  10. INFLECTRA [Suspect]
     Active Substance: INFLIXIMAB-DYYB
     Dosage: 1000 MG , EVERY 8 WEEKS
     Route: 042
     Dates: start: 20220201
  11. DIVALPROEX SODIUM [Concomitant]
     Active Substance: DIVALPROEX SODIUM
     Dosage: 1 DF

REACTIONS (9)
  - Laparotomy [Unknown]
  - Intestinal resection [Unknown]
  - Cellulitis [Not Recovered/Not Resolved]
  - Weight increased [Unknown]
  - Constipation [Not Recovered/Not Resolved]
  - Off label use [Unknown]
  - Intentional product use issue [Unknown]
  - Off label use [Unknown]
  - Off label use [Unknown]

NARRATIVE: CASE EVENT DATE: 20210319
